FAERS Safety Report 24937181 (Version 2)
Quarter: 2025Q1

REPORT INFORMATION
  Report Type: Report from Study
  Country: GB (occurrence: GB)
  Receive Date: 20250206
  Receipt Date: 20250319
  Transmission Date: 20250409
  Serious: Yes (Death, Hospitalization, Other)
  Sender: SANDOZ
  Company Number: GB-SANDOZ-SDZ2025GB006583

PATIENT
  Age: 74 Year
  Sex: Male

DRUGS (1)
  1. OMNITROPE [Suspect]
     Active Substance: SOMATROPIN
     Indication: Hypopituitarism
     Dosage: 0.20 MG, QD
     Route: 058

REACTIONS (7)
  - Death [Fatal]
  - Cerebrovascular accident [Recovering/Resolving]
  - Pneumonia [Unknown]
  - Infection [Unknown]
  - Product dose omission issue [Unknown]
  - Product availability issue [Unknown]
  - Product use issue [Unknown]

NARRATIVE: CASE EVENT DATE: 20250131
